FAERS Safety Report 8920055 (Version 1)
Quarter: 2012Q4

REPORT INFORMATION
  Report Type: 
  Country: US (occurrence: US)
  Receive Date: 20121121
  Receipt Date: 20121121
  Transmission Date: 20130627
  Serious: No
  Sender: FDA-Public Use
  Company Number: US-BRISTOL-MYERS SQUIBB COMPANY-16863052

PATIENT
  Age: 64 Year
  Sex: Male

DRUGS (1)
  1. AVALIDE [Suspect]
     Dosage: 1df:150/12.5mg
     Dates: start: 20120815

REACTIONS (1)
  - Drug dose omission [Unknown]
